FAERS Safety Report 25837216 (Version 2)
Quarter: 2025Q4

REPORT INFORMATION
  Report Type: Spontaneous
  Country: US (occurrence: US)
  Receive Date: 20250923
  Receipt Date: 20251111
  Transmission Date: 20260118
  Serious: Yes (Life-Threatening, Hospitalization, Other)
  Sender: PFIZER
  Company Number: US-PFIZER INC-PV202500113347

PATIENT
  Age: 57 Year
  Sex: Female

DRUGS (7)
  1. GEMCITABINE HYDROCHLORIDE [Suspect]
     Active Substance: GEMCITABINE HYDROCHLORIDE
     Indication: Ovarian epithelial cancer stage III
     Dosage: 2000 MG/M2, CYCLIC EVERY 14 DAYS OF A 28-DAY CYCLE (FIRST CYCLE)
     Dates: start: 200202
  2. GEMCITABINE HYDROCHLORIDE [Suspect]
     Active Substance: GEMCITABINE HYDROCHLORIDE
     Dosage: 1500 MG/M2, CYCLIC (DECREASED)
  3. GEMCITABINE HYDROCHLORIDE [Suspect]
     Active Substance: GEMCITABINE HYDROCHLORIDE
     Dosage: UNK, CYCLIC (FIFTH CYCLE)
  4. GEMCITABINE HYDROCHLORIDE [Suspect]
     Active Substance: GEMCITABINE HYDROCHLORIDE
     Dosage: UNK, CYCLIC (SIXTH CYCLE)
  5. DOXORUBICIN [Suspect]
     Active Substance: DOXORUBICIN
     Indication: Ovarian epithelial cancer stage III
     Dosage: 20 MG/M2, CYCLIC EVERY 14 DAYS OF A 28-DAY CYCLE (FIRST CYCLE)
     Dates: start: 200202
  6. DOXORUBICIN [Suspect]
     Active Substance: DOXORUBICIN
     Dosage: UNK, CYCLIC (FIFTH CYCLE)
  7. DOXORUBICIN [Suspect]
     Active Substance: DOXORUBICIN
     Dosage: UNK, CYCLIC (SIXTH CYCLE)

REACTIONS (3)
  - Hypertension [Unknown]
  - Haemolytic uraemic syndrome [Unknown]
  - Rash [Unknown]
